FAERS Safety Report 21583663 (Version 1)
Quarter: 2022Q4

REPORT INFORMATION
  Report Type: Report from Study
  Country: US (occurrence: US)
  Receive Date: 20221111
  Receipt Date: 20221111
  Transmission Date: 20230113
  Serious: No
  Sender: FDA-Public Use
  Company Number: US-ABBVIE-4196129

PATIENT
  Sex: Female

DRUGS (1)
  1. IMBRUVICA [Suspect]
     Active Substance: IBRUTINIB
     Indication: Chronic lymphocytic leukaemia
     Route: 048

REACTIONS (9)
  - Skin erosion [Unknown]
  - Fungal infection [Unknown]
  - Mucosal disorder [Unknown]
  - Emotional disorder [Unknown]
  - Genital blister [Unknown]
  - Breast pain [Unknown]
  - Genital ulceration [Unknown]
  - Rash macular [Unknown]
  - Loss of personal independence in daily activities [Unknown]
